FAERS Safety Report 4877072-3 (Version None)
Quarter: 2006Q1

REPORT INFORMATION
  Report Type: 
  Country: None (occurrence: None)
  Receive Date: 20060110
  Receipt Date: 20051230
  Transmission Date: 20060701
  Serious: Yes (Hospitalization)
  Sender: FDA-Public Use
  Company Number: US-MERCK-0601USA00137

PATIENT
  Age: 63 Year
  Sex: Male
  Weight: 118 kg

DRUGS (2)
  1. VIOXX [Suspect]
     Indication: OSTEOARTHRITIS
     Route: 048
     Dates: start: 20000401, end: 20000701
  2. VIOXX [Suspect]
     Route: 048
     Dates: start: 20000401, end: 20000701

REACTIONS (11)
  - ARRHYTHMIA [None]
  - ARTHRALGIA [None]
  - CARDIAC DISORDER [None]
  - CHEST PAIN [None]
  - HEADACHE [None]
  - HYPERTENSION [None]
  - LIMB INJURY [None]
  - PAIN IN EXTREMITY [None]
  - RENAL ATROPHY [None]
  - RENAL DISORDER [None]
  - VISION BLURRED [None]
